FAERS Safety Report 5325312-9 (Version None)
Quarter: 2007Q2

REPORT INFORMATION
  Report Type: 
  Country: None (occurrence: None)
  Receive Date: 20070509
  Receipt Date: 20070423
  Transmission Date: 20071010
  Serious: Yes (Other)
  Sender: FDA-Public Use
  Company Number: 2007RR-07124

PATIENT
  Age: 66 Year
  Sex: Male

DRUGS (4)
  1. FLUOXETINE [Suspect]
     Indication: DEPRESSION
     Dosage: 10 MG, UNK, UNK
     Dates: start: 19940801
  2. CHLORDIAZEPOXIDE [Concomitant]
  3. CLONAZEPAM [Concomitant]
  4. DOXEPIN HCL [Concomitant]

REACTIONS (5)
  - HAEMORRHAGE [None]
  - HOMICIDE [None]
  - LACERATION [None]
  - PSYCHOTIC DISORDER [None]
  - SUSPICIOUSNESS [None]
